FAERS Safety Report 14075875 (Version 1)
Quarter: 2017Q4

REPORT INFORMATION
  Report Type: Spontaneous
  Country: US (occurrence: US)
  Receive Date: 20171010
  Receipt Date: 20171010
  Transmission Date: 20180321
  Serious: No
  Sender: FDA-Public Use
  Company Number: US-MYLANLABS-2017010103

PATIENT
  Age: 49 Year
  Sex: Male
  Weight: 117.93 kg

DRUGS (2)
  1. CIALIS [Concomitant]
     Active Substance: TADALAFIL
  2. MUSE [Suspect]
     Active Substance: ALPROSTADIL
     Indication: ERECTILE DYSFUNCTION
     Dosage: 125 ?G,PRN
     Route: 066
     Dates: start: 201701

REACTIONS (1)
  - Wrong technique in product usage process [Recovered/Resolved]

NARRATIVE: CASE EVENT DATE: 201701
